FAERS Safety Report 20090463 (Version 1)
Quarter: 2021Q4

REPORT INFORMATION
  Report Type: Spontaneous
  Country: US (occurrence: US)
  Receive Date: 20211119
  Receipt Date: 20211119
  Transmission Date: 20220303
  Serious: Yes (Hospitalization)
  Sender: FDA-Public Use
  Company Number: US-MYLANLABS-2021M1084431

PATIENT
  Age: 30 Year
  Sex: Female

DRUGS (4)
  1. SODIUM CHLORIDE [Suspect]
     Active Substance: SODIUM CHLORIDE
     Indication: Hypermagnesaemia
     Dosage: UNK
     Route: 065
  2. FUROSEMIDE [Suspect]
     Active Substance: FUROSEMIDE
     Indication: Hypermagnesaemia
     Dosage: UNK
     Route: 042
  3. MAGNESIUM SULFATE [Suspect]
     Active Substance: MAGNESIUM SULFATE
     Indication: Seizure prophylaxis
     Dosage: INFUSION
     Route: 050
  4. SODIUM BICARBONATE [Suspect]
     Active Substance: SODIUM BICARBONATE
     Indication: Hypermagnesaemia
     Dosage: UNK
     Route: 065

REACTIONS (3)
  - Hypermagnesaemia [Recovered/Resolved]
  - Hyperkalaemia [Recovered/Resolved]
  - Maternal exposure during pregnancy [Recovered/Resolved]
